FAERS Safety Report 5707554-3 (Version None)
Quarter: 2008Q2

REPORT INFORMATION
  Report Type: 
  Country: None (occurrence: None)
  Receive Date: 20080416
  Receipt Date: 20080410
  Transmission Date: 20081010
  Serious: Yes (Other)
  Sender: FDA-Public Use
  Company Number: US-MERCK-0803USA02135

PATIENT
  Age: 19 Year
  Sex: Male
  Weight: 100 kg

DRUGS (1)
  1. SINGULAIR [Suspect]
     Indication: ASTHMA
     Route: 048
     Dates: start: 20050101

REACTIONS (2)
  - DEPRESSION [None]
  - SUICIDAL IDEATION [None]
